FAERS Safety Report 7648816-2 (Version None)
Quarter: 2011Q3

REPORT INFORMATION
  Report Type: 
  Country: None (occurrence: None)
  Receive Date: 20110801
  Receipt Date: 20110727
  Transmission Date: 20111222
  Serious: Yes (Other)
  Sender: FDA-Public Use
  Company Number: CZ-PFIZER INC-2011133148

PATIENT
  Age: 59 Year
  Sex: Female

DRUGS (3)
  1. LOSARTAN [Concomitant]
     Indication: HYPERTENSION
     Dosage: 12.5 MG (1 TABLET IN AM), 1X/DAY
  2. XALATAN [Suspect]
     Indication: GLAUCOMA
     Dosage: 1 GTT IN EACH EYE IN THE EVENING
     Dates: start: 20100929, end: 20110602
  3. DETRALEX [Concomitant]
     Dosage: 1 DF, 1X/DAY

REACTIONS (2)
  - VISION BLURRED [None]
  - CATARACT [None]
